FAERS Safety Report 25509326 (Version 2)
Quarter: 2025Q3

REPORT INFORMATION
  Report Type: Spontaneous
  Country: US (occurrence: US)
  Receive Date: 20250703
  Receipt Date: 20250805
  Transmission Date: 20251021
  Serious: No
  Sender: PFIZER
  Company Number: US-PFIZER INC-PV202300065982

PATIENT
  Age: 66 Year
  Sex: Male
  Weight: 81.451 kg

DRUGS (5)
  1. BOSULIF [Suspect]
     Active Substance: BOSUTINIB MONOHYDRATE
     Indication: Chronic myeloid leukaemia
     Dosage: 200 MG, 2X/DAY (TAKE 2 TABLETS OF 100 MG BID)
     Route: 048
     Dates: start: 2019
  2. BOSULIF [Suspect]
     Active Substance: BOSUTINIB MONOHYDRATE
     Dosage: 400 MG, 2X/DAY (TAKE 2 TABLETS BID)
     Route: 048
  3. BOSULIF [Suspect]
     Active Substance: BOSUTINIB MONOHYDRATE
     Dosage: 200 MG, 2X/DAY (TAKE 2 TABLETS OF 100 MG TWICE DAILY (BID) WITH FOOD)
     Route: 048
  4. BOSULIF [Suspect]
     Active Substance: BOSUTINIB MONOHYDRATE
     Route: 048
  5. BOSULIF [Suspect]
     Active Substance: BOSUTINIB MONOHYDRATE
     Dosage: 200 MG, 2X/DAY (TAKE 2 TABLETS OF 100 MG TWICE DAILY (BID) WITH FOOD)
     Route: 048

REACTIONS (3)
  - Abdominal discomfort [Unknown]
  - Off label use [Unknown]
  - Off label use [Unknown]

NARRATIVE: CASE EVENT DATE: 20190101
